FAERS Safety Report 17708455 (Version 2)
Quarter: 2020Q2

REPORT INFORMATION
  Report Type: Report from Study
  Country: BR (occurrence: BR)
  Receive Date: 20200426
  Receipt Date: 20200507
  Transmission Date: 20200714
  Serious: Yes (Other)
  Sender: FDA-Public Use
  Company Number: NVSC2020BR022356

PATIENT
  Age: 43 Year
  Sex: Female
  Weight: 60 kg

DRUGS (1)
  1. COSENTYX [Suspect]
     Active Substance: SECUKINUMAB
     Indication: PSORIATIC ARTHROPATHY
     Dosage: 2 DF, QMO (2 AMPOULES)
     Route: 058
     Dates: start: 20171214

REACTIONS (5)
  - Spinal fracture [Recovering/Resolving]
  - Fall [Recovering/Resolving]
  - Spinal pain [Recovering/Resolving]
  - Spinal cord injury [Recovering/Resolving]
  - Gait disturbance [Recovering/Resolving]

NARRATIVE: CASE EVENT DATE: 20191223
